FAERS Safety Report 19906823 (Version 1)
Quarter: 2021Q4

REPORT INFORMATION
  Report Type: Spontaneous
  Country: US (occurrence: US)
  Receive Date: 20211001
  Receipt Date: 20211001
  Transmission Date: 20220304
  Serious: Yes (Other)
  Sender: FDA-Public Use
  Company Number: None

PATIENT
  Age: 46 Year
  Sex: Female
  Weight: 92.25 kg

DRUGS (12)
  1. REGEN-COV [Suspect]
     Active Substance: CASIRIVIMAB\IMDEVIMAB
     Indication: COVID-19
     Dosage: ?          OTHER FREQUENCY:ONCE;
     Route: 041
     Dates: start: 20210924, end: 20210924
  2. ATORVASTATIN [Concomitant]
     Active Substance: ATORVASTATIN
     Dates: start: 20210629
  3. BIOTIN [Concomitant]
     Active Substance: BIOTIN
     Dates: start: 20210629
  4. capiprazine [Concomitant]
     Dates: start: 20190904
  5. ceirizine hydrochloride [Concomitant]
     Dates: start: 20210510
  6. CHOLECALCIFEROL [Concomitant]
     Active Substance: CHOLECALCIFEROL
     Dates: start: 20190904
  7. DULAGLUTIDE [Concomitant]
     Active Substance: DULAGLUTIDE
     Dates: start: 20210629
  8. DULOXETINE [Concomitant]
     Active Substance: DULOXETINE
     Dates: start: 20210629
  9. FENOFIBRATE [Concomitant]
     Active Substance: FENOFIBRATE
     Dates: start: 20190904
  10. GABAPENTIN [Concomitant]
     Active Substance: GABAPENTIN
     Dates: start: 20190904
  11. METFORMIN [Concomitant]
     Active Substance: METFORMIN HYDROCHLORIDE
     Dates: start: 20190904
  12. SITAGLIPTIN [Concomitant]
     Active Substance: SITAGLIPTIN
     Dates: start: 20190904

REACTIONS (3)
  - Dyspnoea [None]
  - COVID-19 pneumonia [None]
  - Pleural effusion [None]

NARRATIVE: CASE EVENT DATE: 20210926
